FAERS Safety Report 23405706 (Version 1)
Quarter: 2024Q1

REPORT INFORMATION
  Report Type: Spontaneous
  Country: US (occurrence: None)
  Receive Date: 20240113
  Receipt Date: 20240113
  Transmission Date: 20240410
  Serious: Yes (Other)
  Sender: FDA-Public Use
  Company Number: None

PATIENT
  Age: 62 Year
  Sex: Female
  Weight: 61.2 kg

DRUGS (16)
  1. REPATHA [Suspect]
     Active Substance: EVOLOCUMAB
     Indication: Hypercholesterolaemia
     Dosage: 140 MG EVERY 2 WEEKS SUBCUTANEOUS
     Route: 058
     Dates: start: 20230609
  2. PANTOPRAZOLE 20MG TABLETS [Concomitant]
  3. CALCIUM 600MG TABLETS [Concomitant]
  4. MAGNESIUM 200MG TABLETS [Concomitant]
  5. POTASSIUM 99MG TABLETS [Concomitant]
  6. VITAMIN B-12 1000MCG CR TABLETS [Concomitant]
  7. VITAMIN C 1000MG TABLETS [Concomitant]
  8. PAPAYA ENZYME TABLETS W/F [Concomitant]
  9. TYLENOL 325MG TABLETS [Concomitant]
  10. AMLODIPINE BESYLATE [Concomitant]
     Active Substance: AMLODIPINE BESYLATE
  11. LEVOTHYROXINE 0.05MG (50MCG) TAB [Concomitant]
  12. MECLIZINE 12.5MG (RX) TABLETS [Concomitant]
  13. ENALAPRIL 20MG TABLETS [Concomitant]
  14. HYDROCHLOROTHIAZIDE [Concomitant]
     Active Substance: HYDROCHLOROTHIAZIDE
  15. ASPIRIN 81MG EC LOW DOSE TABLETS [Concomitant]
  16. NITROSTAT 0.4MG(1/150GR)SUBLT 100S [Concomitant]

REACTIONS (1)
  - Influenza like illness [None]

NARRATIVE: CASE EVENT DATE: 20240112
